FAERS Safety Report 7662986-1 (Version None)
Quarter: 2011Q3

REPORT INFORMATION
  Report Type: 
  Country: None (occurrence: None)
  Receive Date: 20110805
  Receipt Date: 20100804
  Transmission Date: 20111222
  Serious: No
  Sender: FDA-Public Use
  Company Number: US-ABBOTT-10P-163-0662416-00

PATIENT
  Sex: Male
  Weight: 74.002 kg

DRUGS (1)
  1. NIASPAN [Suspect]
     Indication: BLOOD CHOLESTEROL INCREASED

REACTIONS (5)
  - PARAESTHESIA [None]
  - NAUSEA [None]
  - RASH [None]
  - FLATULENCE [None]
  - FEELING HOT [None]
